FAERS Safety Report 6883307-8 (Version None)
Quarter: 2010Q3

REPORT INFORMATION
  Report Type: 
  Country: None (occurrence: None)
  Receive Date: 20100727
  Receipt Date: 20071105
  Transmission Date: 20110219
  Serious: Yes (Hospitalization, Other)
  Sender: FDA-Public Use
  Company Number: US-PFIZER INC-2006109790

PATIENT
  Sex: Male
  Weight: 88.5 kg

DRUGS (5)
  1. CELEBREX [Suspect]
     Indication: ARTHRALGIA
     Dates: start: 20010616
  2. CELEBREX [Suspect]
     Indication: BACK PAIN
  3. VIOXX [Suspect]
     Indication: ARTHRALGIA
     Dosage: ONCE OR TWICE DAILY
     Dates: start: 19991004, end: 20011101
  4. VIOXX [Suspect]
     Indication: BACK PAIN
  5. HYDROCODONE BITARTRATE [Concomitant]
     Dates: start: 20001114, end: 20020607

REACTIONS (2)
  - CORONARY ARTERY OCCLUSION [None]
  - MYOCARDIAL INFARCTION [None]
